FAERS Safety Report 4457576-8 (Version None)
Quarter: 2004Q3

REPORT INFORMATION
  Report Type: 
  Country: None (occurrence: None)
  Receive Date: 20040922
  Receipt Date: 20040907
  Transmission Date: 20050211
  Serious: Yes (Hospitalization)
  Sender: FDA-Public Use
  Company Number: FRWYE974616AUG04

PATIENT
  Age: 66 Year
  Sex: Female

DRUGS (5)
  1. SOPROL          (BISOPROLOL) [Suspect]
     Dosage: 5 MG 1X PER 1 DAY
     Route: 048
     Dates: start: 19970701
  2. ACUILIX (HYDROCHLOROTHIAZIDE/QUINAPRIL) [Suspect]
     Dosage: 0.5 TABLET 1X PER 1 DAY
     Route: 048
     Dates: start: 19990701
  3. PREVISCAN (FLUINDIONE) [Suspect]
     Indication: PULMONARY EMBOLISM
     Dosage: 1 DOSE 1X PER 1 DAY
     Route: 048
     Dates: start: 20040428, end: 20040501
  4. CLONAZEPAM [Suspect]
     Dosage: 0.5 TABLET 1X PER 1 DAY
     Route: 048
  5. ZYRTEC [Suspect]
     Dosage: 10 MG 1X PER 1 DAY
     Route: 048
     Dates: start: 20040430, end: 20040507

REACTIONS (2)
  - DRUG INTERACTION [None]
  - THERAPEUTIC PRODUCT INEFFECTIVE [None]
